FAERS Safety Report 7717139-5 (Version None)
Quarter: 2011Q3

REPORT INFORMATION
  Report Type: 
  Country: None (occurrence: None)
  Receive Date: 20110830
  Receipt Date: 20110817
  Transmission Date: 20111222
  Serious: Yes (Other)
  Sender: FDA-Public Use
  Company Number: CN-AMGEN-CHNSP2011043683

PATIENT
  Age: 28 Year
  Sex: Male

DRUGS (2)
  1. ENBREL [Suspect]
     Dosage: HALF OF PREVIOUS DOSE ONCE WEEKLY
     Dates: start: 20110601
  2. ENBREL [Suspect]
     Indication: ANKYLOSING SPONDYLITIS
     Dosage: UNSPECIFIED DOSE AND FREQUENCY
     Dates: start: 20101231, end: 20110501

REACTIONS (11)
  - GALLBLADDER DISORDER [None]
  - DRUG EFFECT DECREASED [None]
  - INSOMNIA [None]
  - PERIHEPATIC DISCOMFORT [None]
  - ALANINE AMINOTRANSFERASE INCREASED [None]
  - ASPARTATE AMINOTRANSFERASE INCREASED [None]
  - RED BLOOD CELL SEDIMENTATION RATE INCREASED [None]
  - SPLENOMEGALY [None]
  - GAMMA-GLUTAMYLTRANSFERASE INCREASED [None]
  - C-REACTIVE PROTEIN INCREASED [None]
  - BACK PAIN [None]
